FAERS Safety Report 18104927 (Version 3)
Quarter: 2020Q3

REPORT INFORMATION
  Report Type: Report from Study
  Country: FR (occurrence: FR)
  Receive Date: 20200803
  Receipt Date: 20200901
  Transmission Date: 20201103
  Serious: Yes (Hospitalization, Other)
  Sender: FDA-Public Use
  Company Number: FR-PFIZER INC-2020290465

PATIENT
  Age: 6 Year
  Sex: Male
  Weight: 24 kg

DRUGS (6)
  1. SOLU?MEDROL [Concomitant]
     Active Substance: METHYLPREDNISOLONE SODIUM SUCCINATE
     Indication: BONE MARROW FAILURE
     Dosage: 0.25 TO 1 MG/KG 2X/DAY
     Route: 042
     Dates: start: 20200427, end: 20200606
  2. TAZOCILLINE [Concomitant]
     Active Substance: PIPERACILLIN SODIUM\TAZOBACTAM SODIUM
     Indication: PYREXIA
     Dosage: 100 MG/KG, 3X/DAY
     Route: 042
     Dates: start: 20200415, end: 20200505
  3. CICLOSPORINE [Concomitant]
     Active Substance: CYCLOSPORINE
     Indication: BONE MARROW FAILURE
     Dosage: 2.5 MG/KG, DAILY
  4. ATGAM [Suspect]
     Active Substance: EQUINE THYMOCYTE IMMUNE GLOBULIN
     Indication: BONE MARROW FAILURE
     Dosage: 40 MG/KG, DAILY
     Route: 042
     Dates: start: 20200427, end: 20200430
  5. POLARAMINE [Concomitant]
     Active Substance: DEXCHLORPHENIRAMINE MALEATE
     Indication: PREMEDICATION
  6. VANCOMYCINE [VANCOMYCIN] [Concomitant]
     Active Substance: VANCOMYCIN
     Indication: PYREXIA
     Dosage: 15 MG/KG, 3X/DAY
     Route: 042
     Dates: start: 20200428, end: 20200505

REACTIONS (2)
  - Serum sickness [Recovered/Resolved]
  - Haematuria [Not Recovered/Not Resolved]

NARRATIVE: CASE EVENT DATE: 20200505
